FAERS Safety Report 7319296-1 (Version None)
Quarter: 2011Q1

REPORT INFORMATION
  Report Type: 
  Country: None (occurrence: None)
  Receive Date: 20110228
  Receipt Date: 20100120
  Transmission Date: 20110831
  Serious: No
  Sender: FDA-Public Use
  Company Number: A0840508A

PATIENT
  Age: 20 Year
  Sex: Female

DRUGS (5)
  1. MULTIVITAMIN [Concomitant]
  2. CLARITIN [Concomitant]
  3. LOVAZA [Concomitant]
  4. BIRTH CONTROL PILLS [Concomitant]
  5. LAMOTRIGINE [Suspect]
     Dosage: 100MG PER DAY
     Route: 048
     Dates: end: 20100101

REACTIONS (4)
  - RASH [None]
  - OEDEMA PERIPHERAL [None]
  - URTICARIA [None]
  - MUSCLE SPASMS [None]
